FAERS Safety Report 20034917 (Version 1)
Quarter: 2021Q4

REPORT INFORMATION
  Report Type: Spontaneous
  Country: CO (occurrence: CO)
  Receive Date: 20211104
  Receipt Date: 20211104
  Transmission Date: 20220303
  Serious: Yes (Other)
  Sender: FDA-Public Use
  Company Number: CO-002147023-NVSC2021CO248854

PATIENT

DRUGS (1)
  1. RUXOLITINIB [Suspect]
     Active Substance: RUXOLITINIB
     Indication: Myelofibrosis
     Dosage: 15 MG, BID
     Route: 065
     Dates: start: 2016

REACTIONS (4)
  - Anaemia [Unknown]
  - Prostatomegaly [Unknown]
  - Basal cell carcinoma [Unknown]
  - Skin papilloma [Unknown]

NARRATIVE: CASE EVENT DATE: 20180101
